FAERS Safety Report 24141164 (Version 1)
Quarter: 2024Q3

REPORT INFORMATION
  Report Type: Report from Study
  Country: ZA (occurrence: ZA)
  Receive Date: 20240726
  Receipt Date: 20240726
  Transmission Date: 20241017
  Serious: Yes (Death)
  Sender: REGENERON
  Company Number: ZA-BAYER-2024A107552

PATIENT
  Sex: Male

DRUGS (1)
  1. EYLEA [Suspect]
     Active Substance: AFLIBERCEPT
     Indication: Neovascular age-related macular degeneration
     Dosage: 1 DF RIGHT EYE, SOLUTION FOR INJECTION, 40 MG/ML
     Dates: start: 20221107

REACTIONS (1)
  - Death [Fatal]
